FAERS Safety Report 20686454 (Version 1)
Quarter: 2022Q2

REPORT INFORMATION
  Report Type: Spontaneous
  Country: US (occurrence: US)
  Receive Date: 20220407
  Receipt Date: 20220407
  Transmission Date: 20220721
  Serious: No
  Sender: FDA-Public Use
  Company Number: US-PTC THERAPEUTICS, INC.-US-2021PTC001339

PATIENT
  Age: 13 Year
  Sex: Male

DRUGS (1)
  1. DEFLAZACORT [Suspect]
     Active Substance: DEFLAZACORT
     Indication: Duchenne muscular dystrophy
     Dosage: UNK
     Route: 065

REACTIONS (3)
  - Gait inability [Unknown]
  - Headache [Unknown]
  - Therapy interrupted [Unknown]
